FAERS Safety Report 5912488-5 (Version None)
Quarter: 2008Q4

REPORT INFORMATION
  Report Type: 
  Country: None (occurrence: None)
  Receive Date: 20081007
  Receipt Date: 20081007
  Transmission Date: 20090506
  Serious: Yes (Hospitalization)
  Sender: FDA-Public Use
  Company Number: None

PATIENT
  Age: 45 Year
  Sex: Male
  Weight: 73.9363 kg

DRUGS (10)
  1. TELBIVUDINE  600MG [Suspect]
     Indication: HEPATITIS B
     Dosage: 600MG PO
     Route: 048
  2. CALCIUM -APRESOLINE-PHOSLO [Concomitant]
  3. LOPRESSOR [Concomitant]
  4. CLONIDINE -CATAPRESS- [Concomitant]
  5. NORVASC [Concomitant]
  6. ENTECAVIR -BARACLUDE- [Concomitant]
  7. EPIVIR [Concomitant]
  8. CARAFATE [Concomitant]
  9. MAGNESIUM OXIDE [Concomitant]
  10. APRESOLINE [Concomitant]

REACTIONS (2)
  - BLOOD CREATINE PHOSPHOKINASE INCREASED [None]
  - MYALGIA [None]
